FAERS Safety Report 8485615-6 (Version None)
Quarter: 2012Q3

REPORT INFORMATION
  Report Type: 
  Country: None (occurrence: None)
  Receive Date: 20120703
  Receipt Date: 20120622
  Transmission Date: 20120928
  Serious: Yes (Other)
  Sender: FDA-Public Use
  Company Number: CA-JNJFOC-20120611912

PATIENT
  Sex: Female
  Weight: 53.6 kg

DRUGS (3)
  1. REMICADE [Suspect]
     Indication: CROHN'S DISEASE
     Route: 042
     Dates: start: 20120426
  2. REMICADE [Suspect]
     Route: 042
     Dates: start: 20120120
  3. REMICADE [Suspect]
     Dosage: 5TH INFUSION
     Route: 042
     Dates: start: 20120622

REACTIONS (5)
  - DYSPNOEA [None]
  - NAUSEA [None]
  - CHEST DISCOMFORT [None]
  - VOMITING [None]
  - PAIN [None]
